FAERS Safety Report 5009176-9 (Version None)
Quarter: 2006Q2

REPORT INFORMATION
  Report Type: 
  Country: None (occurrence: None)
  Receive Date: 20060519
  Receipt Date: 20060509
  Transmission Date: 20061013
  Serious: Yes (Hospitalization, Other)
  Sender: FDA-Public Use
  Company Number: 2006AL001167

PATIENT
  Age: 3 Month
  Sex: Male

DRUGS (2)
  1. PROPYLTHIOURACIL TAB [Suspect]
     Dosage: 5 MG/KG;QD
  2. PROPRANOLOL [Concomitant]

REACTIONS (26)
  - ADVERSE EVENT [None]
  - AGITATION NEONATAL [None]
  - BLOOD ALKALINE PHOSPHATASE INCREASED [None]
  - BLOOD PARATHYROID HORMONE INCREASED [None]
  - CEREBRAL ATROPHY [None]
  - CEREBRAL VENTRICLE DILATATION [None]
  - CONGENITAL HYPERTHYROIDISM [None]
  - CYANOSIS [None]
  - DIARRHOEA [None]
  - DRUG EXPOSURE DURING PREGNANCY [None]
  - ELECTROCARDIOGRAM QT CORRECTED INTERVAL PROLONGED [None]
  - HUNGER [None]
  - HUNGRY BONE SYNDROME [None]
  - HYPERHIDROSIS [None]
  - HYPERTONIA [None]
  - HYPOCALCAEMIA [None]
  - INSOMNIA [None]
  - LARYNGOSPASM [None]
  - MICROCEPHALY [None]
  - OSTEOPENIA [None]
  - PREMATURE BABY [None]
  - PSYCHOMOTOR HYPERACTIVITY [None]
  - RESUSCITATION [None]
  - SINUS TACHYCARDIA [None]
  - STARING [None]
  - WEIGHT GAIN POOR [None]
